FAERS Safety Report 16764835 (Version 2)
Quarter: 2019Q4

REPORT INFORMATION
  Report Type: Spontaneous
  Country: JP (occurrence: JP)
  Receive Date: 20190903
  Receipt Date: 20191004
  Transmission Date: 20200122
  Serious: Yes (Disabling, Other)
  Sender: FDA-Public Use
  Company Number: JP-AMGEN-JPNSP2019111478

PATIENT
  Age: 83 Year
  Sex: Female
  Weight: 53 kg

DRUGS (28)
  1. PRALIA [Suspect]
     Active Substance: DENOSUMAB
     Indication: OSTEOPOROSIS
     Dosage: 60 MILLIGRAM
     Route: 058
     Dates: start: 20190118, end: 20190709
  2. MAGNESIUM OXIDE. [Concomitant]
     Active Substance: MAGNESIUM OXIDE
     Dosage: 2 DF, TID
     Route: 048
  3. ALDACTONE A [Concomitant]
     Active Substance: SPIRONOLACTONE
     Dosage: 0.5 DOSAGE FORM, QD
     Route: 048
  4. LIMAPROST ALFADEX [Concomitant]
     Active Substance: LIMAPROST
     Dosage: 1 DF, BID
     Route: 048
  5. LUPRAC [Concomitant]
     Active Substance: TORSEMIDE
     Dosage: UNK, QD
     Route: 065
  6. EDIROL [Concomitant]
     Active Substance: ELDECALCITOL
     Dosage: UNK, QD
     Route: 065
  7. DEPAS [Concomitant]
     Dosage: 0.5 MILLIGRAM, AS NECESSARY
     Route: 048
  8. MAINTATE [Concomitant]
     Active Substance: BISOPROLOL FUMARATE
     Dosage: 0.5 DOSAGE FORM, QD
     Route: 048
  9. JZOLOFT [Concomitant]
     Active Substance: SERTRALINE HYDROCHLORIDE
     Dosage: 25 MG, QD
     Route: 048
  10. ADALAT [Concomitant]
     Active Substance: NIFEDIPINE
     Dosage: UNK, QD
     Route: 065
  11. ADALAT [Concomitant]
     Active Substance: NIFEDIPINE
     Dosage: UNK, QD
     Route: 065
  12. LUPRAC [Concomitant]
     Active Substance: TORSEMIDE
     Dosage: UNK, QD
     Route: 065
  13. SENNOSIDE [Concomitant]
     Active Substance: SENNOSIDES
     Indication: CONSTIPATION
     Dosage: UNK
     Route: 048
  14. MAGNESIUM OXIDE. [Concomitant]
     Active Substance: MAGNESIUM OXIDE
     Dosage: 2 DOSAGE FORM, TID
     Route: 048
  15. SHAKUYAKUKANZOTO [Concomitant]
     Active Substance: HERBALS
     Dosage: 2.5 GRAM, QD
     Route: 048
  16. JZOLOFT [Concomitant]
     Active Substance: SERTRALINE HYDROCHLORIDE
     Dosage: 25 MILLIGRAM, QD
     Route: 048
  17. NEUROTROPIN [Concomitant]
     Active Substance: NEUROTROPIN
     Dosage: 1 DOSAGE FORM, BID
     Route: 048
  18. ROZEREM [Concomitant]
     Active Substance: RAMELTEON
     Dosage: 1 DOSAGE FORM, QD
     Route: 048
  19. BROTIZOLAM [Concomitant]
     Active Substance: BROTIZOLAM
     Dosage: 1 DOSAGE FORM, QD
     Route: 048
  20. EDIROL [Concomitant]
     Active Substance: ELDECALCITOL
     Dosage: UNK, QD
     Route: 065
  21. CARDENALIN [Concomitant]
     Active Substance: DOXAZOSIN MESYLATE
     Dosage: UNK, QD
     Route: 065
  22. SHAKUYAKUKANZOTO [Concomitant]
     Active Substance: HERBALS
     Dosage: 2.5 G, QD
     Route: 048
  23. ROZEREM [Concomitant]
     Active Substance: RAMELTEON
     Dosage: 1 DF, QD
     Route: 048
  24. BROTIZOLAM [Concomitant]
     Active Substance: BROTIZOLAM
     Dosage: 1 DF, QD
     Route: 048
  25. MAINTATE [Concomitant]
     Active Substance: BISOPROLOL FUMARATE
     Dosage: 0.5 DF, QD
     Route: 048
  26. ALDACTONE A [Concomitant]
     Active Substance: SPIRONOLACTONE
     Dosage: 0.5 DF, QD
     Route: 048
  27. LIMAPROST ALFADEX [Concomitant]
     Active Substance: LIMAPROST
     Dosage: 1 DOSAGE FORM, BID
     Route: 048
  28. OLMETEC [Concomitant]
     Active Substance: OLMESARTAN MEDOXOMIL
     Dosage: UNK, QD
     Route: 065

REACTIONS (1)
  - Osteomyelitis [Not Recovered/Not Resolved]

NARRATIVE: CASE EVENT DATE: 20190624
